FAERS Safety Report 8062128-7 (Version None)
Quarter: 2012Q1

REPORT INFORMATION
  Report Type: 
  Country: None (occurrence: None)
  Receive Date: 20120123
  Receipt Date: 20120110
  Transmission Date: 20120608
  Serious: Yes (Hospitalization, Other)
  Sender: FDA-Public Use
  Company Number: US-ELI_LILLY_AND_COMPANY-US201008001503

PATIENT
  Sex: Female

DRUGS (22)
  1. FORTEO [Suspect]
     Dosage: 20 UG, QD
     Route: 058
  2. LEXAPRO [Concomitant]
  3. ASCORBIC ACID [Concomitant]
  4. FORTEO [Suspect]
     Indication: OSTEOPOROSIS
     Dosage: 20 UG, DAILY (1/D)
     Route: 058
     Dates: start: 20100609
  5. FORTEO [Suspect]
     Dosage: 20 UG, QD
     Route: 058
  6. PEGANONE [Concomitant]
  7. DIAZEPAM [Concomitant]
  8. FORTEO [Suspect]
     Dosage: 20 UG, QD
     Route: 058
  9. CHLORACON [Concomitant]
  10. MULTI-VITAMINS [Concomitant]
  11. TRIAMTERENE AND HYDROCHLOROTHIAZIDE [Concomitant]
  12. CLORAZEPATE DIPOTASSIUM [Concomitant]
  13. CALCIUM [Concomitant]
  14. FORTEO [Suspect]
     Dosage: 20 UG, DAILY (1/D)
     Route: 058
  15. FORTEO [Suspect]
     Dosage: 20 UG, DAILY (1/D)
     Route: 058
  16. PHENOBARBITAL TAB [Concomitant]
  17. FORTEO [Suspect]
     Dosage: 20 UG, DAILY (1/D)
     Route: 058
  18. FORTEO [Suspect]
     Dosage: 20 UG, DAILY (1/D)
     Route: 058
  19. VITAMIN D [Concomitant]
  20. FORTEO [Suspect]
     Dosage: 20 UG, DAILY (1/D)
     Route: 058
  21. FORTEO [Suspect]
     Dosage: 20 UG, DAILY (1/D)
     Route: 058
  22. FORTEO [Suspect]
     Dosage: 20 UG, QD
     Route: 058

REACTIONS (26)
  - NERVOUS SYSTEM DISORDER [None]
  - INJECTION SITE PAIN [None]
  - NECK PAIN [None]
  - MUSCLE SPASMS [None]
  - DEVICE BREAKAGE [None]
  - LUMBAR HERNIA [None]
  - PAIN IN EXTREMITY [None]
  - FALL [None]
  - FATIGUE [None]
  - LYMPHADENOPATHY [None]
  - UTERINE CANCER [None]
  - LIMB DISCOMFORT [None]
  - JOINT DISLOCATION [None]
  - BALANCE DISORDER [None]
  - TREMOR [None]
  - OVARIAN CYST [None]
  - MOBILITY DECREASED [None]
  - SENSORY LOSS [None]
  - BACK PAIN [None]
  - SPINAL COLUMN INJURY [None]
  - WEIGHT INCREASED [None]
  - DISTURBANCE IN ATTENTION [None]
  - BACK DISORDER [None]
  - HEAD INJURY [None]
  - NERVE COMPRESSION [None]
  - LIMB INJURY [None]
